FAERS Safety Report 9560857 (Version 2)
Quarter: 2013Q3

REPORT INFORMATION
  Report Type: Spontaneous
  Country: US (occurrence: US)
  Receive Date: 20130927
  Receipt Date: 20130927
  Transmission Date: 20140515
  Serious: No
  Sender: FDA-Public Use
  Company Number: US-BIOGENIDEC-2013BI055036

PATIENT
  Age: 55 Year
  Sex: Female

DRUGS (15)
  1. TECFIDERA [Suspect]
     Indication: MULTIPLE SCLEROSIS
     Route: 048
     Dates: start: 20130528, end: 20130611
  2. TECFIDERA [Suspect]
     Indication: MULTIPLE SCLEROSIS
     Route: 048
     Dates: start: 20130612
  3. BENADRYL [Concomitant]
     Indication: PRURITUS
  4. RESTASIS [Concomitant]
  5. PROVENTIL [Concomitant]
  6. VERAMYST [Concomitant]
  7. BOTOX [Concomitant]
     Indication: MIGRAINE
  8. DILAUDID [Concomitant]
  9. XANAX [Concomitant]
  10. TOPAMAX [Concomitant]
  11. MAXALT [Concomitant]
  12. KLONOPIN [Concomitant]
  13. CELEXA [Concomitant]
  14. LOTEMAX [Concomitant]
  15. PLAVIX [Concomitant]

REACTIONS (12)
  - Dizziness [Not Recovered/Not Resolved]
  - Swelling [Not Recovered/Not Resolved]
  - Fatigue [Not Recovered/Not Resolved]
  - Myalgia [Not Recovered/Not Resolved]
  - Increased tendency to bruise [Not Recovered/Not Resolved]
  - Nail disorder [Not Recovered/Not Resolved]
  - Hiatus hernia [Not Recovered/Not Resolved]
  - Flushing [Not Recovered/Not Resolved]
  - Nausea [Not Recovered/Not Resolved]
  - Diarrhoea [Not Recovered/Not Resolved]
  - Pruritus [Not Recovered/Not Resolved]
  - Feeling hot [Not Recovered/Not Resolved]
